FAERS Safety Report 5279008-2 (Version None)
Quarter: 2007Q1

REPORT INFORMATION
  Report Type: 
  Country: None (occurrence: None)
  Receive Date: 20070328
  Receipt Date: 20060928
  Transmission Date: 20070707
  Serious: No
  Sender: FDA-Public Use
  Company Number: US-AMGEN-US195151

PATIENT
  Age: 49 Year
  Sex: Female

DRUGS (11)
  1. NEULASTA [Suspect]
     Indication: CHEMOTHERAPY
     Route: 058
     Dates: start: 20060922, end: 20060925
  2. CYTARABINE [Concomitant]
     Route: 065
     Dates: end: 20060904
  3. IDARUBICIN HCL [Concomitant]
     Route: 065
     Dates: end: 20060904
  4. SYNTHROID [Concomitant]
     Route: 065
  5. UNIPHYL [Concomitant]
     Route: 065
  6. CONJUGATED ESTROGENS [Concomitant]
     Route: 065
  7. WELLBUTRIN [Concomitant]
     Route: 065
  8. POTASSIUM CHLORIDE [Concomitant]
     Route: 065
  9. PERCOCET [Concomitant]
     Route: 065
  10. VALIUM [Concomitant]
     Route: 065
  11. LOTENSIN [Concomitant]
     Route: 065

REACTIONS (3)
  - INJECTION SITE REACTION [None]
  - SKIN EXFOLIATION [None]
  - WRONG DRUG ADMINISTERED [None]
